FAERS Safety Report 11644827 (Version 2)
Quarter: 2015Q4

REPORT INFORMATION
  Report Type: Spontaneous
  Country: RU (occurrence: RU)
  Receive Date: 20151020
  Receipt Date: 20151105
  Transmission Date: 20160304
  Serious: Yes (Hospitalization)
  Sender: FDA-Public Use
  Company Number: PHHY2015RU134919

PATIENT
  Age: 34 Year
  Sex: Male

DRUGS (6)
  1. GILENYA [Suspect]
     Active Substance: FINGOLIMOD HYDROCHLORIDE
     Indication: MULTIPLE SCLEROSIS
     Dosage: UNK
     Route: 065
     Dates: start: 20150112, end: 201508
  2. BERLITHION [Concomitant]
     Indication: PRODUCT USED FOR UNKNOWN INDICATION
     Route: 065
  3. GILENYA [Suspect]
     Active Substance: FINGOLIMOD HYDROCHLORIDE
     Dosage: UNK
     Route: 065
     Dates: start: 20151011
  4. CYTOFLAVIN [Concomitant]
     Indication: PRODUCT USED FOR UNKNOWN INDICATION
     Route: 065
  5. B FERON [Concomitant]
     Indication: PRODUCT USED FOR UNKNOWN INDICATION
     Route: 065
  6. CEREBROLYSIN [Concomitant]
     Active Substance: CEREBROLYSIN
     Indication: PRODUCT USED FOR UNKNOWN INDICATION
     Route: 065

REACTIONS (14)
  - Atrial fibrillation [Recovered/Resolved]
  - Pyrexia [Unknown]
  - Hyperhidrosis [Unknown]
  - Angina pectoris [Unknown]
  - Asthenia [Unknown]
  - Anxiety [Unknown]
  - Multiple sclerosis relapse [Recovering/Resolving]
  - Blood pressure decreased [Unknown]
  - Syncope [Unknown]
  - Spondylitis [Unknown]
  - Intervertebral disc disorder [Unknown]
  - Diaphragmalgia [Unknown]
  - Central nervous system lesion [Unknown]
  - Bradycardia [Unknown]

NARRATIVE: CASE EVENT DATE: 201507
